FAERS Safety Report 7719389-0 (Version None)
Quarter: 2011Q3

REPORT INFORMATION
  Report Type: 
  Country: None (occurrence: None)
  Receive Date: 20110825
  Receipt Date: 20110818
  Transmission Date: 20111222
  Serious: Yes (Hospitalization, Disabling)
  Sender: FDA-Public Use
  Company Number: NSR_00254_2011

PATIENT
  Age: 59 Year
  Sex: Male
  Weight: 98 kg

DRUGS (2)
  1. TRAMADOL HCL [Suspect]
     Indication: ANALGESIC THERAPY
     Dosage: 100 MG TID
     Dates: start: 20090701
  2. METAMIZOL [Concomitant]

REACTIONS (8)
  - MOBILITY DECREASED [None]
  - DYSPNOEA EXERTIONAL [None]
  - PAIN [None]
  - PLEURAL MESOTHELIOMA [None]
  - ASTHENIA [None]
  - VERTIGO [None]
  - DIZZINESS [None]
  - ACTIVITIES OF DAILY LIVING IMPAIRED [None]
